FAERS Safety Report 19732455 (Version 1)
Quarter: 2021Q3

REPORT INFORMATION
  Report Type: Other
  Country: US (occurrence: US)
  Receive Date: 20210822
  Receipt Date: 20210822
  Transmission Date: 20211014
  Serious: Yes (Hospitalization)
  Sender: FDA-Public Use
  Company Number: US-ROCHE-2891423

PATIENT
  Sex: Female

DRUGS (17)
  1. ALCOHOL WIPE [Concomitant]
     Active Substance: ISOPROPYL ALCOHOL
  2. VITAMIN D3 [Concomitant]
     Active Substance: CHOLECALCIFEROL
  3. FOLVITE [Concomitant]
     Active Substance: FOLIC ACID
  4. COMBIVENT [Concomitant]
     Active Substance: ALBUTEROL SULFATE\IPRATROPIUM BROMIDE
  5. GLUCOPHAGE [Concomitant]
     Active Substance: METFORMIN HYDROCHLORIDE
  6. JARDIANCE [Concomitant]
     Active Substance: EMPAGLIFLOZIN
  7. METHOTREXATE. [Concomitant]
     Active Substance: METHOTREXATE
  8. METROGEL [Concomitant]
     Active Substance: METRONIDAZOLE
  9. PERCOCET [Concomitant]
     Active Substance: ACETAMINOPHEN\OXYCODONE HYDROCHLORIDE
  10. LISINOPRIL. [Concomitant]
     Active Substance: LISINOPRIL
  11. ESBRIET [Suspect]
     Active Substance: PIRFENIDONE
     Indication: IDIOPATHIC PULMONARY FIBROSIS
     Dosage: 3 TABLET(S) BY MOUTH 3 TIMES A DAY WITH MEALS
     Route: 048
  12. XANAX [Concomitant]
     Active Substance: ALPRAZOLAM
  13. LIPITOR [Concomitant]
     Active Substance: ATORVASTATIN CALCIUM
  14. CELEBREX [Concomitant]
     Active Substance: CELECOXIB
  15. DELTASONE [Concomitant]
     Active Substance: PREDNISONE
  16. BROMELAINS [Concomitant]
     Active Substance: BROMELAINS
  17. PROZAC [Concomitant]
     Active Substance: FLUOXETINE HYDROCHLORIDE

REACTIONS (1)
  - Pneumonia [Unknown]
